FAERS Safety Report 4396509-X (Version None)
Quarter: 2004Q3

REPORT INFORMATION
  Report Type: 
  Country: None (occurrence: None)
  Receive Date: 20040709
  Receipt Date: 20040630
  Transmission Date: 20050211
  Serious: Yes (Other)
  Sender: FDA-Public Use
  Company Number: JP-JNJFOC-20040607190

PATIENT

DRUGS (4)
  1. RISPERDAL [Suspect]
     Dosage: ORAL
     Route: 048
     Dates: start: 20040619
  2. QUETIAPINE FUMARATE (QUETIAPINE FUMARATE) [Concomitant]
  3. ZOLPIDEM TARTRATE [Concomitant]
  4. MIANSERIN HYDROCHLORIDE (MIANSERIN HYDROCHLORIDE) [Concomitant]

REACTIONS (4)
  - BLOOD POTASSIUM DECREASED [None]
  - HYPOGLYCAEMIA [None]
  - LEUKOPENIA [None]
  - THROMBOCYTOPENIA [None]
